FAERS Safety Report 11540894 (Version 2)
Quarter: 2015Q3

REPORT INFORMATION
  Report Type: Report from Study
  Country: KR (occurrence: KR)
  Receive Date: 20150923
  Receipt Date: 20150930
  Transmission Date: 20151125
  Serious: Yes (Death, Life-Threatening)
  Sender: FDA-Public Use
  Company Number: KR-CELGENE-KOR-2015092900

PATIENT
  Age: 75 Year
  Sex: Male
  Weight: 85 kg

DRUGS (6)
  1. SPORANOX [Concomitant]
     Active Substance: ITRACONAZOLE\SODIUM CHLORIDE
     Indication: ANTIFUNGAL PROPHYLAXIS
     Route: 048
     Dates: start: 20150616, end: 20150808
  2. RAMOSETRON [Concomitant]
     Active Substance: RAMOSETRON HYDROCHLORIDE
     Indication: ANTIEMETIC SUPPORTIVE CARE
     Dosage: 1 T
     Route: 048
     Dates: start: 20150619, end: 20150623
  3. CT PROCTAN [Concomitant]
     Indication: ANTIFUNGAL PROPHYLAXIS
     Route: 048
     Dates: start: 20150619, end: 20150806
  4. STOGAR [Concomitant]
     Indication: DYSPEPSIA
     Dosage: 1 T
     Route: 048
     Dates: start: 20150616, end: 20150808
  5. AZACITIDINE. [Suspect]
     Active Substance: AZACITIDINE
     Indication: MYELODYSPLASTIC SYNDROME
     Dosage: 145MG
     Route: 058
     Dates: start: 20150617, end: 20150723
  6. BEPARIN [Concomitant]
     Indication: DERMATITIS
     Dosage: 1 T
     Route: 048
     Dates: start: 20150406, end: 20150802

REACTIONS (3)
  - Thrombocytopenia [Not Recovered/Not Resolved]
  - Pneumonia [Fatal]
  - Febrile neutropenia [Not Recovered/Not Resolved]

NARRATIVE: CASE EVENT DATE: 20150807
